FAERS Safety Report 4697228-2 (Version None)
Quarter: 2005Q2

REPORT INFORMATION
  Report Type: 
  Country: None (occurrence: None)
  Receive Date: 20050622
  Receipt Date: 20050511
  Transmission Date: 20051028
  Serious: Yes (Other)
  Sender: FDA-Public Use
  Company Number: IT-GLAXOSMITHKLINE-B0381333A

PATIENT
  Age: 30 Year
  Sex: Female

DRUGS (5)
  1. AUGMENTIN '125' [Suspect]
     Indication: TONSILLITIS
     Route: 048
     Dates: start: 20050507, end: 20050507
  2. KETOPROFEN [Concomitant]
     Indication: TONSILLITIS
     Dosage: 80MG TWICE PER DAY
     Route: 048
  3. ACETAMINOPHEN [Concomitant]
     Indication: TONSILLITIS
     Route: 048
  4. AMOXICILLIN [Concomitant]
     Route: 065
  5. NIMESULIDE [Concomitant]
     Route: 065

REACTIONS (4)
  - ANAPHYLACTIC SHOCK [None]
  - DYSPNOEA [None]
  - MALAISE [None]
  - PRURITUS [None]
